FAERS Safety Report 12117795 (Version 6)
Quarter: 2017Q2

REPORT INFORMATION
  Report Type: Report from Study
  Country: BR (occurrence: BR)
  Receive Date: 20160226
  Receipt Date: 20170504
  Transmission Date: 20170829
  Serious: Yes (Hospitalization, Other)
  Sender: FDA-Public Use
  Company Number: BR-ROCHE-1533893

PATIENT
  Age: 54 Year
  Sex: Female
  Weight: 57 kg

DRUGS (27)
  1. HYDROXYCHLOROQUINE [Concomitant]
     Active Substance: HYDROXYCHLOROQUINE
  2. MABTHERA [Suspect]
     Active Substance: RITUXIMAB
     Indication: RHEUMATOID ARTHRITIS
     Dosage: RECEIVED 7 CYCLES?1000 + 1000 MG
     Route: 042
     Dates: start: 20110921
  3. MABTHERA [Suspect]
     Active Substance: RITUXIMAB
     Indication: SYSTEMIC LUPUS ERYTHEMATOSUS
     Route: 042
     Dates: start: 2014
  4. MABTHERA [Suspect]
     Active Substance: RITUXIMAB
     Dosage: 1000 + 1000 MG
     Route: 042
  5. AZATHIOPRINE. [Concomitant]
     Active Substance: AZATHIOPRINE
     Route: 065
  6. LEVOTHYROXINE. [Concomitant]
     Active Substance: LEVOTHYROXINE
     Route: 065
  7. DAPSONA [Suspect]
     Active Substance: DAPSONE
     Indication: SYSTEMIC LUPUS ERYTHEMATOSUS
     Route: 048
     Dates: start: 2016, end: 2016
  8. DAPSONA [Suspect]
     Active Substance: DAPSONE
     Route: 048
     Dates: start: 201605, end: 201606
  9. REUQUINOL [Concomitant]
     Active Substance: HYDROXYCHLOROQUINE SULFATE
     Route: 065
  10. PREDNISONE. [Concomitant]
     Active Substance: PREDNISONE
     Indication: SYSTEMIC LUPUS ERYTHEMATOSUS
     Route: 048
  11. IVIG [Concomitant]
     Active Substance: HUMAN IMMUNOGLOBULIN G
     Indication: SYSTEMIC LUPUS ERYTHEMATOSUS
     Route: 042
  12. ESOMEPRAZOLE [Concomitant]
     Active Substance: ESOMEPRAZOLE
     Route: 065
  13. PREDNISONE. [Concomitant]
     Active Substance: PREDNISONE
  14. PREDNISONE. [Concomitant]
     Active Substance: PREDNISONE
     Route: 048
     Dates: start: 2014
  15. ESOMEPRAZOLE [Concomitant]
     Active Substance: ESOMEPRAZOLE
     Route: 065
  16. MOTILIUM [Concomitant]
     Active Substance: DOMPERIDONE
     Dosage: BEFORE THE MEALS
     Route: 065
  17. MESALAZINE [Concomitant]
     Active Substance: MESALAMINE
     Route: 065
  18. IMURAN [Concomitant]
     Active Substance: AZATHIOPRINE
     Indication: SYSTEMIC LUPUS ERYTHEMATOSUS
     Route: 048
     Dates: start: 2014
  19. HYDROXYCHLOROQUINE [Concomitant]
     Active Substance: HYDROXYCHLOROQUINE
  20. DEPURA [Concomitant]
     Active Substance: CHOLECALCIFEROL
     Route: 065
  21. LEVOTHYROXINE. [Concomitant]
     Active Substance: LEVOTHYROXINE
  22. PREDNISONE. [Concomitant]
     Active Substance: PREDNISONE
  23. LEVOTHYROXINE. [Concomitant]
     Active Substance: LEVOTHYROXINE
  24. REUQUINOL [Concomitant]
     Active Substance: HYDROXYCHLOROQUINE SULFATE
     Route: 065
  25. LEVOID [Concomitant]
     Active Substance: LEVOTHYROXINE
     Indication: TUBERCULOSIS
     Route: 065
  26. LEVOID [Concomitant]
     Active Substance: LEVOTHYROXINE
     Indication: HYPOTHYROIDISM
  27. AZATHIOPRINE. [Concomitant]
     Active Substance: AZATHIOPRINE
     Route: 065

REACTIONS (15)
  - Systemic lupus erythematosus [Recovered/Resolved]
  - Fall [Unknown]
  - Drug-induced liver injury [Recovered/Resolved]
  - Biliary dyskinesia [Recovered/Resolved]
  - Tuberculosis [Unknown]
  - Spinal fracture [Unknown]
  - Systemic lupus erythematosus [Unknown]
  - Off label use [Unknown]
  - Pneumonia [Unknown]
  - Influenza [Recovering/Resolving]
  - Gastrointestinal disorder [Recovered/Resolved]
  - Herpes zoster [Unknown]
  - Hypersensitivity [Recovered/Resolved]
  - Pain [Unknown]
  - Thrombocytopenia [Recovered/Resolved]

NARRATIVE: CASE EVENT DATE: 201412
